FAERS Safety Report 7785038-9 (Version None)
Quarter: 2011Q3

REPORT INFORMATION
  Report Type: 
  Country: None (occurrence: None)
  Receive Date: 20110929
  Receipt Date: 20110920
  Transmission Date: 20111222
  Serious: Yes (Hospitalization)
  Sender: FDA-Public Use
  Company Number: US-BIOGENIDEC-2011BI006063

PATIENT
  Age: 22 Year
  Sex: Female

DRUGS (3)
  1. AMPICILLIN SODIUM [Concomitant]
     Indication: BACTERIURIA
     Dates: start: 20110101, end: 20110101
  2. TYSABRI [Suspect]
     Indication: MULTIPLE SCLEROSIS
     Route: 042
     Dates: start: 20071126, end: 20110131
  3. PRENATAL VITAMINS [Concomitant]

REACTIONS (3)
  - FOETAL DISTRESS SYNDROME [None]
  - GESTATIONAL HYPERTENSION [None]
  - PREGNANCY [None]
